FAERS Safety Report 11030298 (Version 2)
Quarter: 2015Q2

REPORT INFORMATION
  Report Type: Spontaneous
  Country: MA (occurrence: MA)
  Receive Date: 20150415
  Receipt Date: 20150417
  Transmission Date: 20150821
  Serious: Yes (Other)
  Sender: FDA-Public Use
  Company Number: MA-SUN PHARMACEUTICAL INDUSTRIES LTD-2015RR-94783

PATIENT
  Age: 85 Year
  Sex: Female

DRUGS (11)
  1. HYDROCHLOROTHIAZIDE. [Suspect]
     Active Substance: HYDROCHLOROTHIAZIDE
     Indication: PRODUCT USED FOR UNKNOWN INDICATION
     Dosage: 25 MG, UNK
     Route: 065
     Dates: start: 201211
  2. PROPRANOLOL [Suspect]
     Active Substance: PROPRANOLOL\PROPRANOLOL HYDROCHLORIDE
     Indication: CHEST PAIN
     Dosage: 40 MG, UNK
     Route: 065
     Dates: start: 201306
  3. OMEPRAZOLE. [Concomitant]
     Active Substance: OMEPRAZOLE
     Indication: PRODUCT USED FOR UNKNOWN INDICATION
     Dosage: UNK
     Route: 065
  4. SIMVASTATIN. [Suspect]
     Active Substance: SIMVASTATIN
     Indication: PRODUCT USED FOR UNKNOWN INDICATION
     Dosage: 20 MG, UNK
     Route: 065
  5. AMLODIPINE BESILATE/VALSARTAN [Suspect]
     Active Substance: AMLODIPINE BESYLATE\VALSARTAN
     Indication: PRODUCT USED FOR UNKNOWN INDICATION
     Dosage: UNK
     Route: 065
     Dates: start: 201211
  6. LYSINE ACETYLSALICYLATE [Suspect]
     Active Substance: ASPIRIN LYSINE
     Indication: PRODUCT USED FOR UNKNOWN INDICATION
     Dosage: 160 MG, UNK
     Route: 065
  7. TRAMADOL/PARACETAMOL [Suspect]
     Active Substance: ACETAMINOPHEN\TRAMADOL
     Indication: CHEST PAIN
     Dosage: UNK
     Route: 065
     Dates: start: 201306
  8. ENOXAPRIN [Concomitant]
     Indication: ANTICOAGULANT THERAPY
     Dosage: 40MG/0.4ML
     Route: 065
  9. AMOXICILLIN/ CLAVULANIC ACID [Concomitant]
     Indication: PRODUCT USED FOR UNKNOWN INDICATION
     Dosage: 2 G
     Route: 065
  10. GLYCERYL TRINITRATE [Concomitant]
     Active Substance: NITROGLYCERIN
     Indication: PRODUCT USED FOR UNKNOWN INDICATION
     Dosage: UNK
     Route: 062
  11. TRIMETAZIDINE [Suspect]
     Active Substance: TRIMETAZIDINE
     Indication: PRODUCT USED FOR UNKNOWN INDICATION
     Dosage: 35 MG, UNK
     Route: 065

REACTIONS (1)
  - Dermatitis bullous [Recovered/Resolved]

NARRATIVE: CASE EVENT DATE: 2013
